FAERS Safety Report 9233815 (Version 1)
Quarter: 2013Q2

REPORT INFORMATION
  Report Type: Spontaneous
  Country: US (occurrence: US)
  Receive Date: 20130416
  Receipt Date: 20130416
  Transmission Date: 20140414
  Serious: No
  Sender: FDA-Public Use
  Company Number: US-BANPHARM-20120045

PATIENT
  Age: 7 Decade
  Sex: Male
  Weight: 65 kg

DRUGS (1)
  1. ALEVE LIQUID GELS 220 MG [Suspect]
     Indication: BACK PAIN
     Dosage: 220 MG,  PRN,
     Route: 048
     Dates: start: 201207, end: 20120731

REACTIONS (1)
  - Constipation [Recovered/Resolved]
